FAERS Safety Report 14686681 (Version 3)
Quarter: 2018Q4

REPORT INFORMATION
  Report Type: Spontaneous
  Country: US (occurrence: US)
  Receive Date: 20180327
  Receipt Date: 20181207
  Transmission Date: 20190204
  Serious: Yes (Hospitalization)
  Sender: FDA-Public Use
  Company Number: US-TARO-2018TAR00197

PATIENT
  Age: 62 Year
  Sex: Female
  Weight: 49.89 kg

DRUGS (2)
  1. METRONIDAZOLE GEL USP, 1% [Suspect]
     Active Substance: METRONIDAZOLE
     Dosage: ^A SMALL AMOUNT^, 1X/DAY
     Route: 061
  2. METRONIDAZOLE GEL USP, 1% [Suspect]
     Active Substance: METRONIDAZOLE
     Indication: ROSACEA
     Dosage: ^A SMALL AMOUNT^, 1X/DAY
     Route: 061
     Dates: start: 20180306, end: 20180306

REACTIONS (5)
  - Product quality issue [Recovered/Resolved]
  - Application site pruritus [Recovered/Resolved]
  - Product substitution issue [Recovered/Resolved]
  - Hospitalisation [Recovered/Resolved]
  - Application site pain [Recovering/Resolving]

NARRATIVE: CASE EVENT DATE: 2018
